FAERS Safety Report 6355766-0 (Version None)
Quarter: 2009Q3

REPORT INFORMATION
  Report Type: 
  Country: None (occurrence: None)
  Receive Date: 20090911
  Receipt Date: 20090911
  Transmission Date: 20100115
  Serious: No
  Sender: FDA-Public Use
  Company Number: None

PATIENT
  Age: 65 Year
  Sex: Female
  Weight: 101.1521 kg

DRUGS (1)
  1. BONIVA [Suspect]
     Indication: OSTEOPENIA
     Dosage: MONTHLY P.O.
     Route: 048
     Dates: start: 20090825

REACTIONS (7)
  - DISCOMFORT [None]
  - DYSPNOEA [None]
  - INFLUENZA LIKE ILLNESS [None]
  - MYALGIA [None]
  - NECK PAIN [None]
  - PAIN [None]
  - PAIN IN EXTREMITY [None]
